FAERS Safety Report 5012623-X (Version None)
Quarter: 2006Q2

REPORT INFORMATION
  Report Type: 
  Country: None (occurrence: None)
  Receive Date: 20060411
  Receipt Date: 20060116
  Transmission Date: 20061013
  Serious: No
  Sender: FDA-Public Use
  Company Number: 2006S1000019

PATIENT
  Age: 67 Year
  Sex: Female
  Weight: 91 kg

DRUGS (4)
  1. CUBICIN [Suspect]
     Indication: OSTEOMYELITIS
     Dosage: 4.4MG/KG;Q24H;IV
     Route: 042
     Dates: start: 20060105, end: 20060115
  2. WARFARIN SODIUM [Concomitant]
  3. ACE INHIBITOR [Concomitant]
  4. DIURETIC [Concomitant]

REACTIONS (6)
  - ARTHRALGIA [None]
  - ASPARTATE AMINOTRANSFERASE INCREASED [None]
  - BLOOD CREATINE PHOSPHOKINASE INCREASED [None]
  - MYOGLOBIN BLOOD INCREASED [None]
  - PAIN IN EXTREMITY [None]
  - URINARY TRACT INFECTION [None]
